FAERS Safety Report 10936545 (Version 2)
Quarter: 2015Q2

REPORT INFORMATION
  Report Type: Spontaneous
  Country: US (occurrence: None)
  Receive Date: 20150129
  Receipt Date: 20150625
  Transmission Date: 20150821
  Serious: No
  Sender: FDA-Public Use
  Company Number: A-NJ2014-106169

PATIENT
  Age: 77 Year
  Sex: Female

DRUGS (12)
  1. TENORMIN [Concomitant]
     Active Substance: ATENOLOL
  2. ZOVIRAX (ACICLOVIR SODIUM) [Concomitant]
  3. CITRACAL (CALCIUM CITRATE, COLECALCIFEROL) [Concomitant]
  4. INFLAMASE (PREDNISOLONE SODIUM PHOSPHATE) [Concomitant]
  5. OPSUMIT [Suspect]
     Active Substance: MACITENTAN
     Indication: PULMONARY ARTERIAL HYPERTENSION
     Route: 048
     Dates: start: 20140910, end: 20140926
  6. MAXZIDE (HYDROCHLOROTHIAZIDE, TRIAMTERENE) [Concomitant]
  7. VISINE (DEXTRAN 70, MACROGOL, POVIDONE, TETRYZOLINE HYDROCHLORIDE) [Concomitant]
  8. MULTIVITAMIN (ASCORBIC ACID, CALCIUM PANTOTHENATE, COLECALCIFEROL, CYANOCOBALAMIN, NICOTINAMIDE, PYRIDOXINE HYDROCHLORIDE, RETINAL, RIBOFLAVIN, THIAMINE HYDROCHLORIDE, TOCOPHERYL ACETATE) [Concomitant]
  9. TRAMADOL (TRAMADOL HYDROCHLORIDE) [Concomitant]
     Active Substance: TRAMADOL HYDROCHLORIDE
  10. ASPIRIN. [Concomitant]
     Active Substance: ASPIRIN
  11. ZOCOR [Concomitant]
     Active Substance: SIMVASTATIN
  12. PAMELOR (NORTRIPTYLINE HYDROCHLORIDE) [Concomitant]

REACTIONS (4)
  - Weight increased [None]
  - Back pain [None]
  - Oedema [None]
  - Oedema peripheral [None]

NARRATIVE: CASE EVENT DATE: 20140924
